FAERS Safety Report 16827409 (Version 1)
Quarter: 2019Q3

REPORT INFORMATION
  Report Type: Spontaneous
  Country: AU (occurrence: AU)
  Receive Date: 20190919
  Receipt Date: 20190919
  Transmission Date: 20191005
  Serious: Yes (Other)
  Sender: FDA-Public Use
  Company Number: AU-COVIS PHARMA B.V.-2019COV00231

PATIENT
  Age: 55 Year
  Sex: Female

DRUGS (4)
  1. CLOZAPINE. [Suspect]
     Active Substance: CLOZAPINE
  2. LITHIUM CARBONATE. [Suspect]
     Active Substance: LITHIUM CARBONATE
  3. LEVOTHYROXINE SODIUM. [Suspect]
     Active Substance: LEVOTHYROXINE SODIUM
  4. OMEPRAZOLE MAGNESIUM. [Suspect]
     Active Substance: OMEPRAZOLE MAGNESIUM

REACTIONS (8)
  - Retinal pigmentation [Unknown]
  - Photosensitivity reaction [Unknown]
  - Cataract [Unknown]
  - Macular degeneration [Unknown]
  - Pigmentation disorder [Unknown]
  - Retinal degeneration [Unknown]
  - Visual acuity reduced [Unknown]
  - Corneal pigmentation [Unknown]
